FAERS Safety Report 5445985-X (Version None)
Quarter: 2007Q3

REPORT INFORMATION
  Report Type: 
  Country: None (occurrence: None)
  Receive Date: 20070907
  Receipt Date: 20070831
  Transmission Date: 20080115
  Serious: Yes (Other)
  Sender: FDA-Public Use
  Company Number: US-JNJFOC-20070900227

PATIENT
  Age: 20 Year
  Sex: Male
  Weight: 83.92 kg

DRUGS (3)
  1. IMODIUM ADVANCED [Suspect]
  2. IMODIUM ADVANCED [Suspect]
     Indication: DIARRHOEA
  3. ASTHMA MEDICATION [Concomitant]
     Indication: ASTHMA

REACTIONS (2)
  - HAEMATOCHEZIA [None]
  - INCORRECT DOSE ADMINISTERED [None]
